FAERS Safety Report 21965997 (Version 3)
Quarter: 2024Q1

REPORT INFORMATION
  Report Type: Report from Study
  Country: ES (occurrence: ES)
  Receive Date: 20230208
  Receipt Date: 20240220
  Transmission Date: 20240410
  Serious: Yes (Death, Life-Threatening, Hospitalization, Other)
  Sender: FDA-Public Use
  Company Number: ES-ORPHANEU-2023000621

PATIENT

DRUGS (1)
  1. CARBAGLU [Suspect]
     Active Substance: CARGLUMIC ACID
     Indication: Product used for unknown indication
     Dosage: UNK
     Dates: end: 202212

REACTIONS (20)
  - Haemodynamic instability [Fatal]
  - Liver transplant [Fatal]
  - Hepatic artery thrombosis [Recovered/Resolved with Sequelae]
  - Internal haemorrhage [Recovered/Resolved with Sequelae]
  - Liver transplant [Unknown]
  - Arterial thrombosis [Recovered/Resolved with Sequelae]
  - Liver transplant [Unknown]
  - Liver transplant [Unknown]
  - Portal vein thrombosis [Recovered/Resolved with Sequelae]
  - Hepatic artery thrombosis [Recovered/Resolved with Sequelae]
  - Hepatic artery thrombosis [Recovered/Resolved with Sequelae]
  - Shock haemorrhagic [Recovered/Resolved with Sequelae]
  - Shock haemorrhagic [Recovered/Resolved with Sequelae]
  - Shock haemorrhagic [Recovered/Resolved with Sequelae]
  - Shock haemorrhagic [Recovered/Resolved with Sequelae]
  - Systemic candida [Not Recovered/Not Resolved]
  - Fungal peritonitis [Not Recovered/Not Resolved]
  - Rhinovirus infection [Recovered/Resolved]
  - Abdominal wall haematoma [Recovered/Resolved with Sequelae]
  - Stenotrophomonas infection [Recovered/Resolved]

NARRATIVE: CASE EVENT DATE: 20220101
